FAERS Safety Report 9096446 (Version 2)
Quarter: 2013Q1

REPORT INFORMATION
  Report Type: Spontaneous
  Country: FR (occurrence: None)
  Receive Date: 20130124
  Receipt Date: 20130313
  Transmission Date: 20140127
  Serious: Yes (Other)
  Sender: FDA-Public Use
  Company Number: DSM-2013-00079

PATIENT
  Age: 63 Year
  Sex: Male
  Weight: 87 kg

DRUGS (1)
  1. ALTEIS (OLMESARTAN MEDOXOMIL) (TABLET) (OLMESARTAN MEDOXOMIL) [Suspect]
     Indication: HYPERTENSION
     Route: 048
     Dates: start: 20110707, end: 20121207

REACTIONS (1)
  - Laryngeal dyspnoea [None]
